FAERS Safety Report 7934072-4 (Version None)
Quarter: 2011Q4

REPORT INFORMATION
  Report Type: 
  Country: None (occurrence: None)
  Receive Date: 20111122
  Receipt Date: 20111109
  Transmission Date: 20120403
  Serious: Yes (Hospitalization)
  Sender: FDA-Public Use
  Company Number: CA-ROCHE-GNE322274

PATIENT
  Sex: Female

DRUGS (2)
  1. XOLAIR [Suspect]
     Indication: ASTHMA
     Dosage: 300 MG, Q2W
     Route: 058
     Dates: start: 20080117, end: 20110208
  2. XOLAIR [Suspect]
     Route: 058

REACTIONS (4)
  - PNEUMONIA [None]
  - WOUND COMPLICATION [None]
  - INTERSTITIAL LUNG DISEASE [None]
  - ASTHMA [None]
